FAERS Safety Report 16453275 (Version 1)
Quarter: 2019Q2

REPORT INFORMATION
  Report Type: Spontaneous
  Country: US (occurrence: US)
  Receive Date: 20190619
  Receipt Date: 20190619
  Transmission Date: 20190711
  Serious: No
  Sender: FDA-Public Use
  Company Number: US-ROCHE-2240857

PATIENT
  Sex: Female

DRUGS (6)
  1. ANAKINRA [Concomitant]
     Active Substance: ANAKINRA
  2. TOCILIZUMAB. [Suspect]
     Active Substance: TOCILIZUMAB
     Indication: ACUTE MYELOID LEUKAEMIA
     Route: 065
  3. COLCHICINE. [Concomitant]
     Active Substance: COLCHICINE
  4. PREDNISONE. [Concomitant]
     Active Substance: PREDNISONE
     Route: 065
  5. TACROLIMUS. [Concomitant]
     Active Substance: TACROLIMUS
  6. BARICITINIB [Concomitant]
     Active Substance: BARICITINIB
     Route: 065

REACTIONS (1)
  - Gait disturbance [Unknown]
